FAERS Safety Report 7435319-3 (Version None)
Quarter: 2011Q2

REPORT INFORMATION
  Report Type: 
  Country: None (occurrence: None)
  Receive Date: 20110425
  Receipt Date: 20110419
  Transmission Date: 20111010
  Serious: Yes (Hospitalization)
  Sender: FDA-Public Use
  Company Number: A0790433A

PATIENT
  Age: 69 Year
  Sex: Male
  Weight: 111.8 kg

DRUGS (10)
  1. METFORMIN [Concomitant]
  2. AVANDIA [Suspect]
     Indication: TYPE 2 DIABETES MELLITUS
     Dosage: 2MG TWICE PER DAY
     Route: 048
     Dates: start: 20060819
  3. LASIX [Concomitant]
  4. POTASSIUM CHLORIDE [Concomitant]
  5. GLIPIZIDE [Concomitant]
  6. TOPROL-XL [Concomitant]
  7. HYDROCHLOROTHIAZIDE [Concomitant]
  8. VERAPAMIL [Concomitant]
  9. ASPIRIN [Concomitant]
  10. LOVASTATIN [Concomitant]

REACTIONS (5)
  - RESPIRATORY FAILURE [None]
  - MYOCARDIAL INFARCTION [None]
  - CARDIAC FAILURE CONGESTIVE [None]
  - MYOCARDIAL ISCHAEMIA [None]
  - CORONARY ARTERY DISEASE [None]
